FAERS Safety Report 7171956-1 (Version None)
Quarter: 2010Q4

REPORT INFORMATION
  Report Type: 
  Country: None (occurrence: None)
  Receive Date: 20101217
  Receipt Date: 20100129
  Transmission Date: 20110411
  Serious: No
  Sender: FDA-Public Use
  Company Number: US-AMGEN-KDL389716

PATIENT

DRUGS (3)
  1. ENBREL [Suspect]
     Indication: RHEUMATOID ARTHRITIS
     Dosage: 50 MG, QWK
     Route: 058
     Dates: start: 20100128
  2. ENBREL [Suspect]
     Indication: SJOGREN'S SYNDROME
  3. METHOTREXATE [Concomitant]
     Dosage: 20 MG, QWK
     Dates: start: 20091201

REACTIONS (1)
  - INJECTION SITE PAIN [None]
